FAERS Safety Report 9163031 (Version 1)
Quarter: 2013Q1

REPORT INFORMATION
  Report Type: Spontaneous
  Country: PL (occurrence: PL)
  Receive Date: 20130314
  Receipt Date: 20130314
  Transmission Date: 20140127
  Serious: Yes (Other)
  Sender: FDA-Public Use
  Company Number: PL-BAXTER-2013BAX007419

PATIENT
  Age: 22 Year
  Sex: Male

DRUGS (2)
  1. ENDOXAN [Suspect]
     Indication: DERMATOMYOSITIS
     Route: 042
  2. METHYLPREDNISOLONE [Suspect]
     Indication: DERMATOMYOSITIS
     Route: 048

REACTIONS (1)
  - Drug ineffective [Not Recovered/Not Resolved]
